FAERS Safety Report 4920297-9 (Version None)
Quarter: 2006Q1

REPORT INFORMATION
  Report Type: 
  Country: None (occurrence: None)
  Receive Date: 20060223
  Receipt Date: 20060205
  Transmission Date: 20060701
  Serious: Yes (Hospitalization)
  Sender: FDA-Public Use
  Company Number: DE-GLAXOSMITHKLINE-D0048661A

PATIENT
  Age: 55 Year
  Sex: Female
  Weight: 60 kg

DRUGS (3)
  1. MALARONE [Suspect]
     Indication: MALARIA PROPHYLAXIS
     Dosage: 1TAB PER DAY
     Route: 048
     Dates: start: 20060115, end: 20060202
  2. L-THYROXIN [Concomitant]
     Dosage: 50MCG PER DAY
     Route: 065
  3. HORMONES [Concomitant]
     Route: 065

REACTIONS (5)
  - ACUTE PSYCHOSIS [None]
  - APATHY [None]
  - DISTURBANCE IN ATTENTION [None]
  - HALLUCINATION [None]
  - THINKING ABNORMAL [None]
